FAERS Safety Report 6115717-0 (Version None)
Quarter: 2009Q1

REPORT INFORMATION
  Report Type: 
  Country: None (occurrence: None)
  Receive Date: 20090313
  Receipt Date: 20090311
  Transmission Date: 20090719
  Serious: Yes (Hospitalization)
  Sender: FDA-Public Use
  Company Number: FR-EISAI MEDICAL RESEARCH-E2090-00678-SPO-FR

PATIENT
  Age: 38 Year
  Sex: Female
  Weight: 80 kg

DRUGS (9)
  1. ZONEGRAN [Suspect]
     Indication: DRUG USE FOR UNKNOWN INDICATION
     Route: 048
     Dates: start: 20090213, end: 20090219
  2. ZONEGRAN [Suspect]
     Route: 048
     Dates: start: 20090220, end: 20090226
  3. ZONEGRAN [Suspect]
     Route: 048
  4. CHAMPIX [Suspect]
     Dates: start: 20090223, end: 20090228
  5. KEPPRA [Concomitant]
  6. DEROXAT [Concomitant]
  7. ATARAX [Concomitant]
  8. LANZOPRAZOLE [Concomitant]
     Dates: start: 20081201
  9. FENOFIBRATE [Concomitant]
     Dates: start: 20090101, end: 20090303

REACTIONS (5)
  - ASTHENIA [None]
  - BACK PAIN [None]
  - HEADACHE [None]
  - MYALGIA [None]
  - VOMITING [None]
